FAERS Safety Report 23670784 (Version 1)
Quarter: 2024Q1

REPORT INFORMATION
  Report Type: Spontaneous
  Country: US (occurrence: US)
  Receive Date: 20240326
  Receipt Date: 20240326
  Transmission Date: 20240410
  Serious: Yes (Other)
  Sender: FDA-Public Use
  Company Number: US-NOVOPROD-1192736

PATIENT
  Age: 34 Year
  Sex: Female

DRUGS (3)
  1. OZEMPIC [Suspect]
     Active Substance: SEMAGLUTIDE
     Indication: Product used for unknown indication
     Dosage: 0.25/0.50 MG ONCE WEEKLY
     Route: 058
     Dates: start: 20220901, end: 202210
  2. OZEMPIC [Suspect]
     Active Substance: SEMAGLUTIDE
     Dosage: 0.25/0.50 MG ONCE WEEKLY
     Route: 058
     Dates: start: 202302, end: 202303
  3. OZEMPIC [Suspect]
     Active Substance: SEMAGLUTIDE
     Dosage: 0.25/0.50 MG ONCE WEEKLY
     Route: 058
     Dates: start: 202212, end: 202302

REACTIONS (2)
  - Diverticulitis [Recovered/Resolved]
  - Constipation [Recovered/Resolved]

NARRATIVE: CASE EVENT DATE: 20220901
